FAERS Safety Report 24956401 (Version 2)
Quarter: 2025Q1

REPORT INFORMATION
  Report Type: Report from Study
  Country: FR (occurrence: FR)
  Receive Date: 20250211
  Receipt Date: 20250321
  Transmission Date: 20250409
  Serious: Yes (Other)
  Sender: SK LIFE SCIENCE
  Company Number: FR-ACRAF SpA-2025-037022

PATIENT

DRUGS (9)
  1. XCOPRI [Suspect]
     Active Substance: CENOBAMATE
     Indication: Epilepsy
     Dosage: 100 MILLIGRAM, DAILY (100 MG,1 IN 1 D)
     Route: 048
     Dates: start: 20231201
  2. LACOSAMIDE [Concomitant]
     Active Substance: LACOSAMIDE
     Indication: Product used for unknown indication
     Route: 065
     Dates: start: 201801
  3. PERAMPANEL [Concomitant]
     Active Substance: PERAMPANEL
     Indication: Product used for unknown indication
     Route: 065
     Dates: start: 201801
  4. BRIVIACT [Concomitant]
     Active Substance: BRIVARACETAM
     Indication: Product used for unknown indication
     Route: 065
     Dates: start: 20231111, end: 20231125
  5. BRIVIACT [Concomitant]
     Active Substance: BRIVARACETAM
     Route: 065
     Dates: start: 20231126, end: 202402
  6. BRIVIACT [Concomitant]
     Active Substance: BRIVARACETAM
     Route: 065
     Dates: start: 202402, end: 202404
  7. BRIVIACT [Concomitant]
     Active Substance: BRIVARACETAM
     Route: 065
     Dates: start: 202402, end: 2024
  8. BRIVIACT [Concomitant]
     Active Substance: BRIVARACETAM
     Route: 065
     Dates: start: 202404
  9. SERTRALINE [Concomitant]
     Active Substance: SERTRALINE HYDROCHLORIDE
     Indication: Mixed anxiety and depressive disorder
     Route: 065

REACTIONS (4)
  - Off label use [Recovered/Resolved with Sequelae]
  - Irritability [Recovered/Resolved with Sequelae]
  - Asthenia [Recovered/Resolved with Sequelae]
  - Somnolence [Recovered/Resolved with Sequelae]

NARRATIVE: CASE EVENT DATE: 20240201
